FAERS Safety Report 25802552 (Version 1)
Quarter: 2025Q3

REPORT INFORMATION
  Report Type: Report from Study
  Country: EU (occurrence: EU)
  Receive Date: 20250915
  Receipt Date: 20250915
  Transmission Date: 20251021
  Serious: Yes (Hospitalization)
  Sender: MYLAN
  Company Number: EU-ASTRAZENECA-202505EEA014147FR

PATIENT
  Sex: Male
  Weight: 91 kg

DRUGS (3)
  1. PACLITAXEL [Suspect]
     Active Substance: PACLITAXEL
     Indication: Non-small cell lung cancer
     Dates: start: 20240805, end: 20241119
  2. CARBOPLATIN [Suspect]
     Active Substance: CARBOPLATIN
     Indication: Non-small cell lung cancer
     Dates: start: 20240805, end: 20241119
  3. DURVALUMAB [Suspect]
     Active Substance: DURVALUMAB
     Indication: Non-small cell lung cancer
     Dosage: 1500 MILLIGRAM, Q28D, Q4W
     Dates: start: 20250203, end: 20250804

REACTIONS (4)
  - Sepsis [Unknown]
  - Liver function test abnormal [Not Recovered/Not Resolved]
  - Blood glucose abnormal [Recovered/Resolved]
  - Thyroxine free abnormal [Unknown]
